FAERS Safety Report 8796847 (Version 2)
Quarter: 2012Q4

REPORT INFORMATION
  Report Type: Report from Study
  Country: JP (occurrence: JP)
  Receive Date: 20120919
  Receipt Date: 20121120
  Transmission Date: 20130627
  Serious: Yes (Other)
  Sender: FDA-Public Use
  Company Number: JP-VERTEX PHARMACEUTICAL INC.-2012-021438

PATIENT
  Age: 62 Year
  Sex: Female

DRUGS (6)
  1. VX-950 (TELAPREVIR) [Suspect]
     Indication: CHRONIC HEPATITIS C
     Dosage: 1500 mg, qd
     Route: 048
     Dates: start: 20120904, end: 20120906
  2. REBETOL [Suspect]
     Indication: CHRONIC HEPATITIS C
     Dosage: 600 mg, qd
     Route: 048
     Dates: start: 20120904, end: 20120910
  3. REBETOL [Suspect]
     Dosage: 400 UNK, UNK
     Route: 048
  4. REBETOL [Suspect]
     Dosage: UNK, qd
     Dates: start: 20120915
  5. PEGINTRON                          /01543001/ [Suspect]
     Indication: CHRONIC HEPATITIS C
     Dosage: 1.5 ?g/kg, qw
     Route: 058
     Dates: start: 20120904, end: 20120910
  6. PEGINTRON                          /01543001/ [Suspect]
     Dosage: 1 ?g/kg, qw
     Route: 058
     Dates: start: 20120915

REACTIONS (1)
  - Rash [Recovered/Resolved]
